FAERS Safety Report 6387440-9 (Version None)
Quarter: 2009Q3

REPORT INFORMATION
  Report Type: 
  Country: None (occurrence: None)
  Receive Date: 20090930
  Receipt Date: 20090923
  Transmission Date: 20100115
  Serious: Yes (Other)
  Sender: FDA-Public Use
  Company Number: 386971

PATIENT
  Age: 50 Year
  Sex: Male
  Weight: 72.0312 kg

DRUGS (12)
  1. QUELICIN SUCCINYLCHOLINE CHL INJ, USP (SUXAMETHONIUM CHLORIDE) [Suspect]
     Indication: DRUG USE FOR UNKNOWN INDICATION
     Dosage: 0.01 UG/KG, MIN, INTRAVENOUS (NOT OTHERWISE SPECIDFIED)
     Route: 042
     Dates: start: 20041020, end: 20041020
  2. BIVALIRUDIN [Suspect]
     Indication: CARDIOPULMONARY BYPASS
     Dosage: 368.8 MG INTRAVENOUS (NOT OTHERWISE SPECIFIED)
     Route: 042
     Dates: start: 20041020, end: 20041020
  3. LISINOPRIL [Suspect]
     Indication: HYPERTENSION
     Dosage: 5 MG DAILY ORAL
     Route: 048
     Dates: start: 20041018
  4. NOREPINEPHRINE BITARTRATE [Suspect]
     Indication: DRUG USE FOR UNKNOWN INDICATION
     Dosage: 0.02 UG/KG MIN, 0.01 UG/KG/MIN INTRAVENOUS (NOT OTHERWISE SPECIFIED)
     Route: 042
     Dates: start: 20041020, end: 20041020
  5. NOREPINEPHRINE BITARTRATE [Suspect]
     Indication: DRUG USE FOR UNKNOWN INDICATION
     Dosage: 0.02 UG/KG MIN, 0.01 UG/KG/MIN INTRAVENOUS (NOT OTHERWISE SPECIFIED)
     Route: 042
     Dates: start: 20041020, end: 20041020
  6. FENTANYL [Concomitant]
  7. GLYCERYL TRINITRATE [Concomitant]
  8. OXYGEN [Concomitant]
  9. ACETYLSALICYLIC ACID [Concomitant]
  10. METOPROLOL [Concomitant]
  11. ATORVASTATIN [Concomitant]
  12. HEPARIN [Concomitant]

REACTIONS (5)
  - CORONARY ARTERY DISEASE [None]
  - HYPOTENSION [None]
  - MYOCARDIAL INFARCTION [None]
  - PRESYNCOPE [None]
  - VENTRICULAR TACHYCARDIA [None]
